FAERS Safety Report 19471226 (Version 1)
Quarter: 2021Q2

REPORT INFORMATION
  Report Type: Report from Study
  Country: US (occurrence: US)
  Receive Date: 20210628
  Receipt Date: 20210628
  Transmission Date: 20210717
  Serious: Yes (Hospitalization)
  Sender: FDA-Public Use
  Company Number: US-EISAI MEDICAL RESEARCH-EC-2021-094839

PATIENT
  Age: 59 Year
  Sex: Male

DRUGS (10)
  1. SUCRALFATE. [Concomitant]
     Active Substance: SUCRALFATE
  2. GLIPIZIDE?METFORMIN [Concomitant]
     Active Substance: GLIPIZIDE\METFORMIN HYDROCHLORIDE
  3. DOCUSATE CALCIUM. [Concomitant]
     Active Substance: DOCUSATE CALCIUM
  4. CARVEDILOL. [Concomitant]
     Active Substance: CARVEDILOL
  5. ATORVASTATIN CALCIUM. [Concomitant]
     Active Substance: ATORVASTATIN CALCIUM
  6. METFORMIN ER GASTRIC [Concomitant]
  7. ALOGLIPTIN?PIOGLITAZONE [Concomitant]
  8. LENVIMA [Suspect]
     Active Substance: LENVATINIB
     Indication: HEPATOCELLULAR CARCINOMA
     Route: 048
     Dates: start: 20210517, end: 202106
  9. FERROUS SULFATE. [Concomitant]
     Active Substance: FERROUS SULFATE
     Dosage: 325 (65)
  10. FISH OIL [Concomitant]
     Active Substance: FISH OIL

REACTIONS (5)
  - Melaena [Unknown]
  - Haemorrhage [Unknown]
  - Chest wall operation [Unknown]
  - Urticaria [Unknown]
  - Rash [Unknown]

NARRATIVE: CASE EVENT DATE: 2021
